FAERS Safety Report 26214936 (Version 1)
Quarter: 2025Q4

REPORT INFORMATION
  Report Type: Spontaneous
  Country: US (occurrence: US)
  Receive Date: 20251230
  Receipt Date: 20251230
  Transmission Date: 20260118
  Serious: Yes (Other)
  Sender: BIOMARIN
  Company Number: US-BIOMARINAP-US-2025-170872

PATIENT
  Sex: Female

DRUGS (1)
  1. VIMIZIM [Suspect]
     Active Substance: ELOSULFASE ALFA
     Indication: Mucopolysaccharidosis IV
     Dosage: 40 MILLIGRAM, QW
     Dates: start: 201610

REACTIONS (3)
  - Developmental hip dysplasia [Recovering/Resolving]
  - Sleep apnoea syndrome [Recovering/Resolving]
  - Mucopolysaccharidosis IV [Recovering/Resolving]
